FAERS Safety Report 19183993 (Version 3)
Quarter: 2021Q2

REPORT INFORMATION
  Report Type: Spontaneous
  Country: US (occurrence: US)
  Receive Date: 20210427
  Receipt Date: 20210512
  Transmission Date: 20210717
  Serious: Yes (Hospitalization, Other)
  Sender: FDA-Public Use
  Company Number: US-JNJFOC-20210427282

PATIENT
  Age: 50 Year
  Sex: Female

DRUGS (2)
  1. JANSSEN COVID?19 VACCINE [Suspect]
     Active Substance: AD26.COV2.S
     Indication: IMMUNISATION
     Dosage: VACCINATED ON LEFT DELTOID
     Route: 065
     Dates: start: 20210314, end: 20210314
  2. BENADRYL [Suspect]
     Active Substance: DIPHENHYDRAMINE HYDROCHLORIDE
     Indication: RASH PRURITIC
     Route: 065
     Dates: start: 202103

REACTIONS (19)
  - Abdominal distension [Recovering/Resolving]
  - Colitis [Recovering/Resolving]
  - Injection site erythema [Recovered/Resolved]
  - Feeding disorder [Unknown]
  - Injection site swelling [Recovering/Resolving]
  - Injection site mass [Recovering/Resolving]
  - Tinnitus [Recovering/Resolving]
  - Pyrexia [Not Recovered/Not Resolved]
  - Renal failure [Unknown]
  - Haemorrhoids [Recovering/Resolving]
  - Headache [Not Recovered/Not Resolved]
  - Nausea [Unknown]
  - Rectal haemorrhage [Recovering/Resolving]
  - Polyp [Recovered/Resolved]
  - Dizziness [Not Recovered/Not Resolved]
  - Muscle spasms [Unknown]
  - Joint stiffness [Recovering/Resolving]
  - Rash pruritic [Recovered/Resolved]
  - Myalgia [Recovered/Resolved]

NARRATIVE: CASE EVENT DATE: 2021
